FAERS Safety Report 25225912 (Version 1)
Quarter: 2025Q2

REPORT INFORMATION
  Report Type: Spontaneous
  Country: US (occurrence: US)
  Receive Date: 20250422
  Receipt Date: 20250422
  Transmission Date: 20250716
  Serious: No
  Sender: SANOFI AVENTIS
  Company Number: US-SA-2025SA114546

PATIENT
  Sex: Female

DRUGS (10)
  1. DUPIXENT [Suspect]
     Active Substance: DUPILUMAB
     Indication: Chronic obstructive pulmonary disease
     Dosage: 300 MG QOW
     Route: 058
  2. CUVITRU [Concomitant]
     Active Substance: HUMAN IMMUNOGLOBULIN G
  3. FLUTICASONE [Concomitant]
     Active Substance: FLUTICASONE
  4. GABAPENTIN [Concomitant]
     Active Substance: GABAPENTIN
  5. HYDRALAZINE [Concomitant]
     Active Substance: HYDRALAZINE HYDROCHLORIDE
  6. HYDROCODONE [Concomitant]
     Active Substance: HYDROCODONE
  7. IPRATROPIUM [Concomitant]
     Active Substance: IPRATROPIUM
  8. MONTELUKAST [Concomitant]
     Active Substance: MONTELUKAST
  9. OSELTAMIVIR [Concomitant]
     Active Substance: OSELTAMIVIR
  10. ACETAMINOPHEN\TRAMADOL [Concomitant]
     Active Substance: ACETAMINOPHEN\TRAMADOL

REACTIONS (1)
  - Illness [Unknown]
